FAERS Safety Report 20143888 (Version 2)
Quarter: 2021Q4

REPORT INFORMATION
  Report Type: Report from Study
  Country: KR (occurrence: None)
  Receive Date: 20211203
  Receipt Date: 20211207
  Transmission Date: 20220303
  Serious: Yes (Hospitalization)
  Sender: FDA-Public Use
  Company Number: KR-Merck Healthcare KGaA-9284211

PATIENT
  Age: 21 Year
  Sex: Female

DRUGS (1)
  1. REBIF [Suspect]
     Active Substance: INTERFERON BETA-1A
     Indication: Product used for unknown indication
     Route: 058
     Dates: start: 20210616

REACTIONS (1)
  - Disease recurrence [Unknown]

NARRATIVE: CASE EVENT DATE: 20210101
